FAERS Safety Report 11369760 (Version 1)
Quarter: 2015Q3

REPORT INFORMATION
  Report Type: Spontaneous
  Country: US (occurrence: US)
  Receive Date: 20150812
  Receipt Date: 20150812
  Transmission Date: 20151125
  Serious: No
  Sender: FDA-Public Use
  Company Number: US-JNJFOC-20150518963

PATIENT
  Age: 67 Year
  Sex: Male
  Weight: 98.88 kg

DRUGS (2)
  1. INVOKANA [Suspect]
     Active Substance: CANAGLIFLOZIN
     Indication: TYPE 2 DIABETES MELLITUS
     Dosage: BEFORE FIRST MEAL OF THE DAY
     Route: 048
     Dates: start: 2015, end: 201505
  2. INVOKANA [Suspect]
     Active Substance: CANAGLIFLOZIN
     Indication: TYPE 2 DIABETES MELLITUS
     Route: 048
     Dates: start: 201505

REACTIONS (9)
  - Hyperhidrosis [Not Recovered/Not Resolved]
  - Nausea [Recovering/Resolving]
  - Cold sweat [Recovering/Resolving]
  - Retching [Not Recovered/Not Resolved]
  - Thirst [Not Recovered/Not Resolved]
  - Adverse event [Unknown]
  - Musculoskeletal chest pain [Recovering/Resolving]
  - Furuncle [Not Recovered/Not Resolved]
  - Hunger [Not Recovered/Not Resolved]

NARRATIVE: CASE EVENT DATE: 201505
